FAERS Safety Report 21132316 (Version 1)
Quarter: 2022Q3

REPORT INFORMATION
  Report Type: Spontaneous
  Country: US (occurrence: US)
  Receive Date: 20220726
  Receipt Date: 20220726
  Transmission Date: 20221026
  Serious: Yes (Other)
  Sender: FDA-Public Use
  Company Number: US-PFIZER INC-202201001792

PATIENT

DRUGS (1)
  1. GABAPENTIN [Suspect]
     Active Substance: GABAPENTIN
     Dosage: UNK
     Dates: start: 20220721

REACTIONS (1)
  - Atrial fibrillation [Unknown]

NARRATIVE: CASE EVENT DATE: 20220721
